FAERS Safety Report 16775783 (Version 1)
Quarter: 2019Q3

REPORT INFORMATION
  Report Type: Spontaneous
  Country: FR (occurrence: FR)
  Receive Date: 20190905
  Receipt Date: 20190905
  Transmission Date: 20191005
  Serious: Yes (Other)
  Sender: FDA-Public Use
  Company Number: FR-PFIZER INC-2019376181

PATIENT
  Age: 77 Year
  Sex: Male
  Weight: 66 kg

DRUGS (6)
  1. RECOMBINANT HUMAN ERYTHROPOIETIN [Suspect]
     Active Substance: ERYTHROPOIETIN
     Indication: NEPHROGENIC ANAEMIA
     Dosage: 3 UNKNOWN UNIT, WEEKLY
     Route: 058
  2. LASILIX SPECIAL [FUROSEMIDE] [Suspect]
     Active Substance: FUROSEMIDE
     Dosage: 500 MG, UNK
     Route: 048
  3. TRANDATE [Suspect]
     Active Substance: LABETALOL HYDROCHLORIDE
     Dosage: 200 MG, 1X/DAY
     Route: 048
  4. ASPEGIC [ACETYLSALICYLATE LYSINE] [Suspect]
     Active Substance: ASPIRIN DL-LYSINE
     Dosage: 100 MG, 1X/DAY
     Route: 048
  5. SUTENT [Suspect]
     Active Substance: SUNITINIB MALATE
     Indication: RENAL CANCER
     Dosage: 50 MG, 1X/DAY
     Route: 048
     Dates: start: 20180727
  6. LERCAN [Suspect]
     Active Substance: LERCANIDIPINE
     Dosage: 10 MG, 1X/DAY
     Route: 048

REACTIONS (1)
  - Left ventricular dysfunction [Not Recovered/Not Resolved]

NARRATIVE: CASE EVENT DATE: 20190114
